FAERS Safety Report 6751227 (Version 3)
Quarter: 2013Q2

REPORT INFORMATION
  Report Type: Report from Study
  Country: US (occurrence: US)
  Receive Date: 20080909
  Receipt Date: 20130516
  Transmission Date: 20140414
  Serious: Yes (Death, Hospitalization)
  Sender: FDA-Public Use
  Company Number: PHHO2008US10196

PATIENT
  Age: 48 Year
  Sex: Male
  Weight: 82.7 kg

DRUGS (11)
  1. ERL 080A [Suspect]
     Indication: RENAL TRANSPLANT
     Dosage: UNK
     Route: 048
     Dates: start: 20070317
  2. ERL 080A [Suspect]
     Dosage: 1080 MG, BID
     Route: 048
     Dates: start: 20080803, end: 20080804
  3. ERL 080A [Suspect]
     Dosage: 720 MG, BID
     Route: 048
     Dates: start: 20080805, end: 20080817
  4. NEORAL [Suspect]
     Indication: RENAL TRANSPLANT
     Dosage: 100 MG, BID
     Route: 048
     Dates: start: 20080306, end: 20080820
  5. PREDNISOLONE [Concomitant]
     Dosage: 2.5 MG  DALILY
     Route: 048
  6. DIOVAN [Concomitant]
     Dosage: 160 MG, BID
     Route: 048
  7. ATENOLOL [Concomitant]
     Dosage: 50 MG, BID
     Route: 048
  8. NIFEDIPINE [Concomitant]
     Dosage: 30 MG, BID
     Route: 048
  9. XANAX [Concomitant]
     Dosage: 0.25 MG, QHS
     Route: 048
  10. XANAX [Concomitant]
     Dosage: 0.5 MG, QHS
     Route: 048
  11. SODIUM BICARBONATE [Concomitant]

REACTIONS (15)
  - Diarrhoea [Not Recovered/Not Resolved]
  - Hypovolaemia [Not Recovered/Not Resolved]
  - West Nile viral infection [Fatal]
  - Pyrexia [Fatal]
  - Chills [Fatal]
  - Headache [Fatal]
  - Nystagmus [Fatal]
  - Feeling jittery [Fatal]
  - Diplopia [Fatal]
  - Tremor [Fatal]
  - Dysarthria [Fatal]
  - Vision blurred [Fatal]
  - Chronic allograft nephropathy [Not Recovered/Not Resolved]
  - Renal impairment [Not Recovered/Not Resolved]
  - Colitis [Unknown]
